FAERS Safety Report 11082349 (Version 1)
Quarter: 2015Q2

REPORT INFORMATION
  Report Type: Report from Study
  Country: BR (occurrence: BR)
  Receive Date: 20150501
  Receipt Date: 20150501
  Transmission Date: 20150821
  Serious: Yes (Hospitalization, Other)
  Sender: FDA-Public Use
  Company Number: PHHY2015BR047214

PATIENT
  Age: 54 Year
  Sex: Female
  Weight: 100 kg

DRUGS (7)
  1. LIPITOR [Suspect]
     Active Substance: ATORVASTATIN CALCIUM
     Indication: HYPERTENSION
     Dosage: 20 MG, (MORNING AND NIGHT), UNK
     Route: 065
  2. BRASART [Suspect]
     Active Substance: VALSARTAN
     Dosage: 2 DF (160 MG), UNK
     Route: 065
  3. DIOCOMB SI [Suspect]
     Active Substance: SIMVASTATIN\VALSARTAN
     Indication: PRODUCT USED FOR UNKNOWN INDICATION
     Dosage: UNK
     Route: 065
  4. DIOVAN TRIPLE [Suspect]
     Active Substance: AMLODIPINE BESYLATE\HYDROCHLOROTHIAZIDE\VALSARTAN
     Indication: PRODUCT USED FOR UNKNOWN INDICATION
     Dosage: UNK
     Route: 065
  5. DIOVAN [Suspect]
     Active Substance: VALSARTAN
     Indication: PRODUCT USED FOR UNKNOWN INDICATION
     Dosage: UNK
     Route: 065
  6. BRASART [Suspect]
     Active Substance: VALSARTAN
     Indication: BLOOD PRESSURE
     Dosage: 1 DF (160 MG), UNK
     Route: 065
  7. EXFORGE [Suspect]
     Active Substance: AMLODIPINE BESYLATE\VALSARTAN
     Indication: HYPERTENSION
     Dosage: UNK
     Route: 065

REACTIONS (3)
  - Hypertension [Recovering/Resolving]
  - Headache [Recovering/Resolving]
  - Blood pressure abnormal [Recovering/Resolving]

NARRATIVE: CASE EVENT DATE: 20150414
